FAERS Safety Report 8718335 (Version 2)
Quarter: 2012Q4

REPORT INFORMATION
  Report Type: 
  Country: CA (occurrence: CA)
  Receive Date: 20120810
  Receipt Date: 20121015
  Transmission Date: 20130627
  Serious: Yes (Other)
  Sender: FDA-Public Use
  Company Number: CA-ELI_LILLY_AND_COMPANY-CA201208002382

PATIENT
  Age: 25 Year
  Sex: Male

DRUGS (8)
  1. FORTEO [Suspect]
     Indication: OSTEOPOROSIS
     Dosage: 20 ug, qd
     Route: 058
     Dates: start: 20120405
  2. DEFLAZACORT [Concomitant]
  3. VITAMIN D [Concomitant]
  4. METOPROLOL [Concomitant]
  5. ZESTRIL [Concomitant]
  6. CITALOPRAM [Concomitant]
  7. CALCIUM [Concomitant]
  8. ANDROGEL [Concomitant]

REACTIONS (3)
  - Weight increased [Not Recovered/Not Resolved]
  - Upper limb fracture [Recovering/Resolving]
  - Blood thyroid stimulating hormone increased [Unknown]
